FAERS Safety Report 5941372-6 (Version None)
Quarter: 2008Q4

REPORT INFORMATION
  Report Type: 
  Country: None (occurrence: None)
  Receive Date: 20081105
  Receipt Date: 20081024
  Transmission Date: 20090506
  Serious: Yes (Other)
  Sender: FDA-Public Use
  Company Number: US-JNJFOC-20081006169

PATIENT
  Sex: Male
  Weight: 88.45 kg

DRUGS (2)
  1. VIADUR [Suspect]
     Indication: DRUG USE FOR UNKNOWN INDICATION
     Dosage: IMPLANT INSERTED IN JUNE
     Route: 058
  2. UNSPECIFIED DRUG [Concomitant]

REACTIONS (1)
  - HAEMATURIA [None]
